FAERS Safety Report 7434423-3 (Version None)
Quarter: 2011Q2

REPORT INFORMATION
  Report Type: 
  Country: None (occurrence: None)
  Receive Date: 20110415
  Receipt Date: 20110331
  Transmission Date: 20111010
  Serious: Yes (Other)
  Sender: FDA-Public Use
  Company Number: AUR-APL-2011-01201

PATIENT
  Age: 62 Year
  Sex: Female

DRUGS (2)
  1. LAMOTRIGINE [Suspect]
     Indication: CONVULSION
     Dates: end: 20080701
  2. INHALED STEROIDS [Concomitant]

REACTIONS (6)
  - ORAL HAIRY LEUKOPLAKIA [None]
  - COMBINED IMMUNODEFICIENCY [None]
  - ALANINE AMINOTRANSFERASE INCREASED [None]
  - LOWER RESPIRATORY TRACT INFECTION [None]
  - CD4/CD8 RATIO DECREASED [None]
  - BLOOD IMMUNOGLOBULIN G DECREASED [None]
